FAERS Safety Report 5421877-7 (Version None)
Quarter: 2007Q3

REPORT INFORMATION
  Report Type: 
  Country: None (occurrence: None)
  Receive Date: 20070817
  Receipt Date: 20070725
  Transmission Date: 20080115
  Serious: Yes (Hospitalization, Other)
  Sender: FDA-Public Use
  Company Number: 2007RR-09039

PATIENT
  Sex: Male

DRUGS (2)
  1. IBUPROFEN TABLETS [Suspect]
  2. ARTHROTEC [Suspect]
     Dosage: ORAL
     Route: 048
     Dates: end: 20030507

REACTIONS (2)
  - GASTRIC ULCER HAEMORRHAGE [None]
  - INTERVERTEBRAL DISC COMPRESSION [None]
